FAERS Safety Report 9349272 (Version 4)
Quarter: 2013Q3

REPORT INFORMATION
  Report Type: Report from Study
  Country: DE (occurrence: DE)
  Receive Date: 20130614
  Receipt Date: 20130816
  Transmission Date: 20140515
  Serious: Yes (Hospitalization)
  Sender: FDA-Public Use
  Company Number: DE-TEVA-412373USA

PATIENT
  Sex: Female

DRUGS (12)
  1. BENDAMUSTINE [Suspect]
     Route: 042
     Dates: start: 20130428
  2. BENDAMUSTINE [Suspect]
     Route: 042
     Dates: start: 20130524
  3. RITUXIMAB [Suspect]
     Route: 042
     Dates: start: 20130424
  4. RITUXIMAB [Suspect]
     Route: 042
     Dates: start: 20130523
  5. PREDNISOLON [Suspect]
     Dates: start: 20130424
  6. PREDNISOLON [Suspect]
     Dates: start: 20130523
  7. METOPROLOL [Concomitant]
     Dosage: 190 MILLIGRAM DAILY;
  8. DIGITOXIN [Concomitant]
     Dosage: .07 MILLIGRAM DAILY;
  9. OMEPRAZOL [Concomitant]
     Dosage: 40 MILLIGRAM DAILY;
  10. ALLOPURINOL [Concomitant]
     Dosage: 150 MILLIGRAM DAILY;
     Dates: end: 20130614
  11. LANTUS [Concomitant]
     Dosage: 10  DAILY; IE
  12. CLEXANE [Concomitant]
     Dosage: 1.2 ML DAILY;

REACTIONS (5)
  - Disorientation [Recovering/Resolving]
  - Delirium [Recovering/Resolving]
  - Infection [Recovering/Resolving]
  - Dementia [Recovering/Resolving]
  - Malnutrition [Recovering/Resolving]
